FAERS Safety Report 23112777 (Version 1)
Quarter: 2023Q4

REPORT INFORMATION
  Report Type: Other
  Country: JP (occurrence: None)
  Receive Date: 20231027
  Receipt Date: 20231027
  Transmission Date: 20240110
  Serious: Yes (Hospitalization)
  Sender: FDA-Public Use
  Company Number: JP-ROCHE-3442233

PATIENT
  Age: 5 Decade
  Sex: Female
  Weight: 52 kg

DRUGS (9)
  1. BEVACIZUMAB [Suspect]
     Active Substance: BEVACIZUMAB
     Indication: Metastases to lung
     Route: 065
  2. PACLITAXEL [Suspect]
     Active Substance: PACLITAXEL
     Indication: Metastases to lung
     Route: 065
  3. PACLITAXEL [Suspect]
     Active Substance: PACLITAXEL
     Indication: Squamous cell carcinoma of the cervix
  4. CARBOPLATIN [Suspect]
     Active Substance: CARBOPLATIN
     Indication: Metastases to lung
     Route: 065
  5. CARBOPLATIN [Suspect]
     Active Substance: CARBOPLATIN
     Indication: Squamous cell carcinoma of the cervix
  6. TAXOTERE [Concomitant]
     Active Substance: DOCETAXEL
     Indication: Squamous cell carcinoma of the cervix
  7. TAXOTERE [Concomitant]
     Active Substance: DOCETAXEL
     Indication: Metastases to central nervous system
  8. CYCLOPHOSPHAMIDE [Concomitant]
     Active Substance: CYCLOPHOSPHAMIDE
     Indication: Squamous cell carcinoma of the cervix
  9. CYCLOPHOSPHAMIDE [Concomitant]
     Active Substance: CYCLOPHOSPHAMIDE
     Indication: Metastases to central nervous system

REACTIONS (3)
  - Pancreatic carcinoma metastatic [Unknown]
  - Obstructive pancreatitis [Unknown]
  - Disease progression [Unknown]
